FAERS Safety Report 4272484-3 (Version None)
Quarter: 2004Q1

REPORT INFORMATION
  Report Type: 
  Country: None (occurrence: None)
  Receive Date: 20040115
  Receipt Date: 20040106
  Transmission Date: 20041129
  Serious: Yes (Hospitalization)
  Sender: FDA-Public Use
  Company Number: WAES 0401USA00431

PATIENT
  Age: 48 Year
  Sex: Male

DRUGS (12)
  1. ASPIRIN [Concomitant]
  2. ATENOLOL [Concomitant]
  3. DILTIAZEM HYDROCHLORIDE [Concomitant]
  4. ERGOTAMINE TARTRATE [Concomitant]
  5. FOSINOPRIL SODIUM [Concomitant]
  6. FUROSEMIDE [Concomitant]
  7. GABAPENTIN [Concomitant]
  8. INSULIN [Concomitant]
  9. METOLAZONE [Concomitant]
  10. RANITIDINE [Concomitant]
  11. ZOCOR [Suspect]
     Route: 048
     Dates: start: 20010101, end: 20020501
  12. TRAZODONE HYDROCHLORIDE [Concomitant]

REACTIONS (13)
  - ATROPHY [None]
  - CYANOSIS [None]
  - DERMATOMYOSITIS [None]
  - DIABETIC NEUROPATHY [None]
  - FIBROMYALGIA [None]
  - GAIT DISTURBANCE [None]
  - MALAISE [None]
  - MYOPATHY [None]
  - NEUROPATHY PERIPHERAL [None]
  - OEDEMA PERIPHERAL [None]
  - PAIN [None]
  - PIRIFORMIS SYNDROME [None]
  - VASCULITIS [None]
